FAERS Safety Report 20411132 (Version 1)
Quarter: 2022Q1

REPORT INFORMATION
  Report Type: Spontaneous
  Country: US (occurrence: None)
  Receive Date: 20220201
  Receipt Date: 20220201
  Transmission Date: 20220423
  Serious: Yes (Hospitalization)
  Sender: FDA-Public Use
  Company Number: None

PATIENT
  Age: 59 Year
  Sex: Male

DRUGS (1)
  1. AMLODIPINE BESYLATE AND BENAZEPRIL HYDROCHLORIDE [Suspect]
     Active Substance: AMLODIPINE BESYLATE\BENAZEPRIL HYDROCHLORIDE
     Indication: Hypertension
     Dosage: FREQUENCY : DAILY;?
     Route: 048
     Dates: start: 20210112, end: 20211025

REACTIONS (5)
  - Chronic inflammatory demyelinating polyradiculoneuropathy [None]
  - Mouth swelling [None]
  - Throat tightness [None]
  - Dysphagia [None]
  - COVID-19 [None]

NARRATIVE: CASE EVENT DATE: 20211026
